FAERS Safety Report 7329581-5 (Version None)
Quarter: 2011Q1

REPORT INFORMATION
  Report Type: 
  Country: None (occurrence: None)
  Receive Date: 20110303
  Receipt Date: 20110221
  Transmission Date: 20110831
  Serious: Yes (Hospitalization)
  Sender: FDA-Public Use
  Company Number: US-ACTELION-A-NJ2011-45497

PATIENT

DRUGS (1)
  1. TRACLEER [Suspect]
     Indication: PULMONARY ARTERIAL HYPERTENSION
     Dosage: UNK
     Route: 048
     Dates: start: 20080824

REACTIONS (6)
  - JOINT INJURY [None]
  - ARTHRALGIA [None]
  - PELVIC FRACTURE [None]
  - HIP FRACTURE [None]
  - FALL [None]
  - MUSCLE INJURY [None]
